FAERS Safety Report 8002123-7 (Version None)
Quarter: 2011Q4

REPORT INFORMATION
  Report Type: 
  Country: None (occurrence: None)
  Receive Date: 20111222
  Receipt Date: 20111217
  Transmission Date: 20120403
  Serious: Yes (Hospitalization, Other)
  Sender: FDA-Public Use
  Company Number: US-US-EMD SERONO, INC.-7080547

PATIENT
  Sex: Male

DRUGS (4)
  1. ATIVAN [Concomitant]
  2. CYMBALTA [Concomitant]
     Dates: start: 20070101
  3. REBIF [Suspect]
     Indication: MULTIPLE SCLEROSIS
     Route: 058
     Dates: start: 20110301
  4. VISTARIL [Concomitant]

REACTIONS (3)
  - SUICIDE ATTEMPT [None]
  - SUICIDAL IDEATION [None]
  - DEPRESSION [None]
